FAERS Safety Report 6803233-X (Version None)
Quarter: 2010Q2

REPORT INFORMATION
  Report Type: 
  Country: None (occurrence: None)
  Receive Date: 20100628
  Receipt Date: 20100618
  Transmission Date: 20101027
  Serious: Yes (Death, Hospitalization)
  Sender: FDA-Public Use
  Company Number: B0662423A

PATIENT
  Age: 46 Year
  Sex: Male

DRUGS (21)
  1. KIVEXA [Suspect]
     Indication: HIV INFECTION
     Dosage: 600MG PER DAY
     Route: 048
     Dates: start: 20090305
  2. SIMVASTATIN [Suspect]
     Dosage: 40MG PER DAY
     Route: 048
     Dates: start: 20091214
  3. PRAVASTATIN [Suspect]
     Dosage: 40MG PER DAY
     Route: 048
     Dates: start: 20100127
  4. ISENTRESS [Suspect]
     Dosage: 800MG PER DAY
     Route: 048
     Dates: start: 20090507
  5. INTELENCE [Suspect]
     Indication: ANTIVIRAL TREATMENT
     Route: 065
     Dates: start: 20090301, end: 20090501
  6. SELOKEN ZOC [Suspect]
     Indication: DRUG USE FOR UNKNOWN INDICATION
     Route: 065
     Dates: start: 20100301
  7. CREON [Concomitant]
     Indication: DRUG USE FOR UNKNOWN INDICATION
     Route: 065
  8. INSULATARD [Concomitant]
     Indication: DRUG USE FOR UNKNOWN INDICATION
     Dates: start: 20091201
  9. NEBIDO [Concomitant]
     Indication: DRUG USE FOR UNKNOWN INDICATION
  10. TRIOBE [Concomitant]
     Indication: DRUG USE FOR UNKNOWN INDICATION
     Route: 065
  11. E-VIMIN [Concomitant]
     Indication: DRUG USE FOR UNKNOWN INDICATION
     Route: 065
  12. C-VIMIN [Concomitant]
     Indication: DRUG USE FOR UNKNOWN INDICATION
  13. DIAZEPAM [Concomitant]
     Indication: DRUG USE FOR UNKNOWN INDICATION
     Route: 065
  14. KALEORID [Concomitant]
     Indication: DRUG USE FOR UNKNOWN INDICATION
     Route: 065
  15. ZESTRIL [Concomitant]
     Indication: DRUG USE FOR UNKNOWN INDICATION
     Route: 065
  16. TROMBYL [Concomitant]
     Indication: DRUG USE FOR UNKNOWN INDICATION
     Route: 065
  17. ALLOPURINOL [Concomitant]
     Indication: DRUG USE FOR UNKNOWN INDICATION
     Route: 065
  18. XENICAL [Concomitant]
     Indication: DRUG USE FOR UNKNOWN INDICATION
     Route: 065
  19. TRIZIVIR [Concomitant]
     Indication: ANTIVIRAL TREATMENT
     Dates: end: 20090301
  20. BEZALIP [Concomitant]
     Dates: start: 20090701
  21. CRESTOR [Concomitant]
     Route: 065
     Dates: start: 20090901

REACTIONS (8)
  - ABDOMINAL PAIN [None]
  - ADVERSE DRUG REACTION [None]
  - MULTI-ORGAN FAILURE [None]
  - PANCREATITIS ACUTE [None]
  - PANCREATITIS NECROTISING [None]
  - PYREXIA [None]
  - RHABDOMYOLYSIS [None]
  - VOMITING [None]
